FAERS Safety Report 7689570-8 (Version None)
Quarter: 2011Q3

REPORT INFORMATION
  Report Type: 
  Country: None (occurrence: None)
  Receive Date: 20110817
  Receipt Date: 20110803
  Transmission Date: 20111222
  Serious: Yes (Other)
  Sender: FDA-Public Use
  Company Number: US-WATSON-2011-12235

PATIENT
  Sex: Male
  Weight: 126 kg

DRUGS (1)
  1. TRELSTAR [Suspect]
     Indication: PROSTATE CANCER
     Dosage: 1 INJECTION, Q6 MONTHS
     Route: 030
     Dates: start: 20100526, end: 20110427

REACTIONS (7)
  - FATIGUE [None]
  - ASTHENIA [None]
  - MUSCULAR WEAKNESS [None]
  - FALL [None]
  - GAIT DISTURBANCE [None]
  - URTICARIA [None]
  - WEIGHT DECREASED [None]
